FAERS Safety Report 5883417-8 (Version None)
Quarter: 2008Q3

REPORT INFORMATION
  Report Type: 
  Country: None (occurrence: None)
  Receive Date: 20080915
  Receipt Date: 20080904
  Transmission Date: 20090109
  Serious: Yes (Hospitalization)
  Sender: FDA-Public Use
  Company Number: IN-ELI_LILLY_AND_COMPANY-IN200809001078

PATIENT
  Sex: Male
  Weight: 58 kg

DRUGS (10)
  1. PEMETREXED [Suspect]
     Indication: NON-SMALL CELL LUNG CANCER
     Dosage: 500 MG/M2 ON DAY 1,22,43
     Route: 042
     Dates: start: 20080821
  2. CARBOPLATIN [Suspect]
     Indication: NON-SMALL CELL LUNG CANCER
     Dosage: AUC 5, D1,8,22,29,43
     Route: 042
     Dates: start: 20080821
  3. RADIATION [Suspect]
     Indication: NON-SMALL CELL LUNG CANCER
     Dosage: 2 CENTIGRAY, D1-49
     Dates: start: 20080821
  4. FOLIC ACID [Concomitant]
     Indication: SUPPLEMENTATION THERAPY
     Dosage: UNK, UNK
     Dates: start: 20080728
  5. VITAMIN B-12 [Concomitant]
     Indication: SUPPLEMENTATION THERAPY
     Dosage: UNK, UNK
     Dates: start: 20080728
  6. DOMPERIDONE [Concomitant]
     Indication: ANTIEMETIC SUPPORTIVE CARE
     Dosage: UNK, UNK
     Dates: start: 20080821
  7. OXETHAZINE [Concomitant]
     Indication: DYSPHAGIA
     Dosage: UNK, UNK
     Dates: start: 20080902
  8. ALUMINIUM HYDROXIDE W/ MAGNESIUM HYDROXIDE [Concomitant]
     Indication: DYSPHAGIA
     Dates: start: 20080902
  9. ACETYLSALICYLIC ACID SRT [Concomitant]
     Indication: DYSPHAGIA
     Dates: start: 20080902
  10. ITRACONAZOLE [Concomitant]
     Indication: ANTIFUNGAL PROPHYLAXIS
     Dates: start: 20080902, end: 20080904

REACTIONS (1)
  - MEDIASTINITIS [None]
